FAERS Safety Report 18059136 (Version 1)
Quarter: 2020Q3

REPORT INFORMATION
  Report Type: Spontaneous
  Country: JP (occurrence: JP)
  Receive Date: 20200723
  Receipt Date: 20200723
  Transmission Date: 20201103
  Serious: Yes (Death, Other)
  Sender: FDA-Public Use
  Company Number: JP-AMGEN-JPNSP2020117065

PATIENT
  Age: 50 Year
  Sex: Male

DRUGS (1)
  1. VECTIBIX [Suspect]
     Active Substance: PANITUMUMAB
     Indication: COLON CANCER
     Dosage: UNK
     Route: 042
     Dates: start: 202002

REACTIONS (2)
  - Colon cancer [Fatal]
  - Disease progression [Fatal]

NARRATIVE: CASE EVENT DATE: 202004
